FAERS Safety Report 9521851 (Version 2)
Quarter: 2013Q3

REPORT INFORMATION
  Report Type: Spontaneous
  Country: US (occurrence: US)
  Receive Date: 20130913
  Receipt Date: 20130926
  Transmission Date: 20140515
  Serious: Yes (Other)
  Sender: FDA-Public Use
  Company Number: US-UCBSA-096737

PATIENT
  Age: 51 Year
  Sex: Female

DRUGS (1)
  1. KEPPRA XR [Suspect]
     Indication: CONVULSION
     Dosage: EXTENDED RELEASE TABLET
     Dates: start: 201306, end: 201307

REACTIONS (3)
  - Convulsion [Recovered/Resolved]
  - Feeling abnormal [Recovered/Resolved]
  - Inappropriate schedule of drug administration [Unknown]
